FAERS Safety Report 8943795 (Version 1)
Quarter: 2012Q4

REPORT INFORMATION
  Report Type: 
  Country: NL (occurrence: NL)
  Receive Date: 20121203
  Receipt Date: 20121203
  Transmission Date: 20130627
  Serious: Yes (Hospitalization)
  Sender: FDA-Public Use
  Company Number: NL-GLAXOSMITHKLINE-B0849049A

PATIENT
  Age: 60 Year
  Sex: Male

DRUGS (7)
  1. MALARONE [Suspect]
     Indication: MALARIA PROPHYLAXIS
     Route: 065
     Dates: start: 20121001
  2. ACETYLSALICYLIC ACID [Concomitant]
  3. DIPYRIDAMOLE [Concomitant]
  4. ATORVASTATIN [Concomitant]
  5. METOPROLOL [Concomitant]
     Route: 048
  6. EZETIMIBE [Concomitant]
     Route: 048
  7. ISOSORBIDE MONONITRATE [Concomitant]

REACTIONS (1)
  - Leukocytoclastic vasculitis [Recovering/Resolving]
